FAERS Safety Report 6287550-0 (Version None)
Quarter: 2009Q4

REPORT INFORMATION
  Report Type: 
  Country: None (occurrence: None)
  Receive Date: 20090727
  Receipt Date: 20090720
  Transmission Date: 20100525
  Serious: Yes (Other)
  Sender: FDA-Public Use
  Company Number: 2009SP014541

PATIENT
  Age: 54 Year
  Sex: Female
  Weight: 53.0709 kg

DRUGS (6)
  1. AFRIN [Suspect]
     Indication: SINUS CONGESTION
     Dosage: NAS
     Route: 045
  2. AFRIN [Suspect]
     Indication: SINUS CONGESTION
     Dosage: NAS
     Route: 045
  3. AFRIN [Suspect]
     Indication: SINUS CONGESTION
     Dosage: NAS
     Route: 045
     Dates: start: 20090501, end: 20090601
  4. MULTI-VITAMIN [Concomitant]
  5. AFRIN [Suspect]
  6. AFRIN [Suspect]

REACTIONS (3)
  - DRUG DEPENDENCE [None]
  - DYSPNOEA [None]
  - SINUS DISORDER [None]
